FAERS Safety Report 20508438 (Version 1)
Quarter: 2022Q1

REPORT INFORMATION
  Report Type: Spontaneous
  Country: US (occurrence: None)
  Receive Date: 20220223
  Receipt Date: 20220223
  Transmission Date: 20220423
  Serious: Yes (Hospitalization, Other)
  Sender: FDA-Public Use
  Company Number: US-ROCHE-3025339

PATIENT
  Age: 74 Year
  Sex: Male

DRUGS (2)
  1. VALCYTE [Suspect]
     Active Substance: VALGANCICLOVIR HYDROCHLORIDE
     Indication: Product used for unknown indication
     Dosage: EVERY DAY
     Route: 065
  2. CANDESARTAN CILEXETIL [Suspect]
     Active Substance: CANDESARTAN CILEXETIL
     Indication: Blood pressure measurement
     Route: 065

REACTIONS (35)
  - Blood pressure increased [Unknown]
  - Metabolic acidosis [Unknown]
  - Renal cyst haemorrhage [Unknown]
  - Aortic arteriosclerosis [Unknown]
  - Carotid arteriosclerosis [Unknown]
  - Bradycardia [Unknown]
  - Vena cava injury [Unknown]
  - Intraductal papillary mucinous neoplasm [Unknown]
  - Swelling [Unknown]
  - Renal artery stenosis [Unknown]
  - Spinal osteoarthritis [Unknown]
  - Hepatic steatosis [Unknown]
  - Left ventricular hypertrophy [Unknown]
  - Spinal stenosis [Unknown]
  - Hypertension [Unknown]
  - Presyncope [Unknown]
  - Oedema peripheral [Unknown]
  - Atrioventricular block [Unknown]
  - Vertigo [Unknown]
  - Restless legs syndrome [Unknown]
  - Benign prostatic hyperplasia [Unknown]
  - Hepatosplenomegaly [Unknown]
  - Gastrooesophageal reflux disease [Unknown]
  - Hyperparathyroidism [Unknown]
  - Haemorrhoids [Unknown]
  - Actinic keratosis [Unknown]
  - Myalgia [Unknown]
  - Fear [Unknown]
  - Insomnia [Unknown]
  - Headache [Unknown]
  - Swelling of eyelid [Unknown]
  - Restlessness [Unknown]
  - Dizziness [Unknown]
  - Atrial fibrillation [Unknown]
  - Swelling face [Unknown]
